FAERS Safety Report 4527356-3 (Version None)
Quarter: 2004Q4

REPORT INFORMATION
  Report Type: 
  Country: None (occurrence: None)
  Receive Date: 20041214
  Receipt Date: 20041214
  Transmission Date: 20050328
  Serious: Yes (Other)
  Sender: FDA-Public Use
  Company Number: None

PATIENT
  Sex: Female

DRUGS (2)
  1. PRIMAQUINE PHOSPHATE [Suspect]
     Indication: MALARIA PROPHYLAXIS
     Dosage: 30 MG BASE   QD   ORAL
     Route: 048
     Dates: start: 20041201, end: 20041205
  2. CHLOROQUINE PHOSPHATE [Concomitant]

REACTIONS (2)
  - BACK PAIN [None]
  - CHROMATURIA [None]
